FAERS Safety Report 7583138-X (Version None)
Quarter: 2011Q2

REPORT INFORMATION
  Report Type: 
  Country: None (occurrence: None)
  Receive Date: 20110630
  Receipt Date: 20110228
  Transmission Date: 20111010
  Serious: No
  Sender: FDA-Public Use
  Company Number: US-ASTRAZENECA-2011SE10998

PATIENT
  Sex: Male

DRUGS (1)
  1. ZOLADEX [Suspect]
     Route: 058
     Dates: start: 20100101

REACTIONS (1)
  - SCIATICA [None]
